FAERS Safety Report 24458824 (Version 1)
Quarter: 2024Q4

REPORT INFORMATION
  Report Type: Spontaneous
  Country: US (occurrence: None)
  Receive Date: 20241017
  Receipt Date: 20241017
  Transmission Date: 20250115
  Serious: Yes (Hospitalization)
  Sender: Public
  Company Number: None

PATIENT
  Age: 63 Year
  Sex: Male
  Weight: 68 kg

DRUGS (2)
  1. CEFEPIME HYDROCHLORIDE [Suspect]
     Active Substance: CEFEPIME HYDROCHLORIDE
     Indication: Osteomyelitis
     Dosage: FREQUENCY : TWICE A DAY;?
     Route: 042
  2. METRONIDAZOLE [Suspect]
     Active Substance: METRONIDAZOLE

REACTIONS (9)
  - Agitation [None]
  - Confusional state [None]
  - Delirium [None]
  - Hallucination [None]
  - Somnolence [None]
  - Hypertonia [None]
  - Unresponsive to stimuli [None]
  - Neurotoxicity [None]
  - Encephalopathy [None]

NARRATIVE: CASE EVENT DATE: 20231205
